FAERS Safety Report 24008998 (Version 1)
Quarter: 2024Q2

REPORT INFORMATION
  Report Type: Report from Study
  Country: IN (occurrence: IN)
  Receive Date: 20240625
  Receipt Date: 20240625
  Transmission Date: 20240716
  Serious: Yes (Other)
  Sender: FDA-Public Use
  Company Number: IN-CIPLA LTD.-2024IN06287

PATIENT

DRUGS (5)
  1. SPIRONOLACTONE\TORSEMIDE [Suspect]
     Active Substance: SPIRONOLACTONE\TORSEMIDE
     Indication: Product used for unknown indication
     Dosage: UNK, STRENGTH: 10 UNITS UNSPECIFIED (DOSE: 1 TABLET, FREQUENCY - 1 UNITS UNSPECIFIED)
     Route: 048
  2. WARFARIN SODIUM [Suspect]
     Active Substance: WARFARIN SODIUM
     Indication: Anticoagulant therapy
     Dosage: DOSE - 1 UNITS UNSPECIFIED, FREQUENCY - 1 UNITS UNSPECIFIED (STRENGTH: 3 UNITS UNSPECIFIED)
     Route: 048
  3. ROZAVEL A [Concomitant]
     Indication: Product used for unknown indication
     Dosage: UNK, STRENGTH: 10 UNITS UNSPECIFIED
     Route: 065
  4. NEPTAZ [Concomitant]
     Indication: Product used for unknown indication
     Dosage: UNK, STRENGTH: 50 UNITS UNSPECIFIED
     Route: 065
  5. METOCARD XL [Concomitant]
     Indication: Product used for unknown indication
     Dosage: UNK, STRENGTH: 50 UNITS UNSPECIFIED
     Route: 065

REACTIONS (1)
  - Asthenia [Not Recovered/Not Resolved]

NARRATIVE: CASE EVENT DATE: 20240101
